FAERS Safety Report 23134329 (Version 2)
Quarter: 2023Q4

REPORT INFORMATION
  Report Type: Spontaneous
  Country: US (occurrence: US)
  Receive Date: 20231101
  Receipt Date: 20231113
  Transmission Date: 20240110
  Serious: Yes (Life-Threatening, Hospitalization)
  Sender: FDA-Public Use
  Company Number: US-TEVA-2023-US-2940312

PATIENT
  Age: 45 Year
  Sex: Male

DRUGS (1)
  1. LISINOPRIL [Suspect]
     Active Substance: LISINOPRIL
     Indication: Product used for unknown indication
     Route: 065

REACTIONS (6)
  - Acquired macroglossia [Recovering/Resolving]
  - Angioedema [Recovering/Resolving]
  - Mental disorder [Recovering/Resolving]
  - Pneumonia [Recovering/Resolving]
  - Hyperkalaemia [Recovering/Resolving]
  - Acidosis [Recovering/Resolving]
